FAERS Safety Report 21153760 (Version 1)
Quarter: 2022Q3

REPORT INFORMATION
  Report Type: Spontaneous
  Country: US (occurrence: US)
  Receive Date: 20220801
  Receipt Date: 20220801
  Transmission Date: 20221026
  Serious: Yes (Other)
  Sender: FDA-Public Use
  Company Number: US-STRIDES ARCOLAB LIMITED-2022SP004539

PATIENT
  Sex: Female

DRUGS (6)
  1. MYCOPHENOLATE MOFETIL [Suspect]
     Active Substance: MYCOPHENOLATE MOFETIL
     Indication: Chronic cutaneous lupus erythematosus
     Dosage: 1.5 GRAM, BID
     Route: 065
  2. MYCOPHENOLATE MOFETIL [Suspect]
     Active Substance: MYCOPHENOLATE MOFETIL
     Indication: Chronic cutaneous lupus erythematosus
  3. DAPSONE [Suspect]
     Active Substance: DAPSONE
     Indication: Chronic cutaneous lupus erythematosus
     Dosage: 100 MILLIGRAM PER DAY
     Route: 065
  4. DAPSONE [Suspect]
     Active Substance: DAPSONE
     Indication: Chronic cutaneous lupus erythematosus
  5. ASPIRIN [Concomitant]
     Active Substance: ASPIRIN
     Indication: Antiphospholipid syndrome
     Dosage: 81 MILLIGRAM PER DAY
     Route: 065
  6. PENTOXIFYLLINE [Concomitant]
     Active Substance: PENTOXIFYLLINE
     Indication: Raynaud^s phenomenon
     Dosage: 800 MILLIGRAM BID
     Route: 065

REACTIONS (1)
  - Drug ineffective for unapproved indication [Unknown]
